FAERS Safety Report 8272452 (Version 6)
Quarter: 2012Q4

REPORT INFORMATION
  Report Type: 
  Country: AU (occurrence: AU)
  Receive Date: 20111202
  Receipt Date: 20121115
  Transmission Date: 20130627
  Serious: Yes (Death, Other)
  Sender: FDA-Public Use
  Company Number: AU-B.I. PHARMACEUTICALS,INC./RIDGEFIELD-2011-AU-02307AU

PATIENT
  Sex: Female

DRUGS (2)
  1. PRADAXA [Suspect]
     Indication: ATRIAL FIBRILLATION
     Dosage: 220 mg
     Dates: start: 20110801
  2. DIGOXIN [Concomitant]

REACTIONS (4)
  - Cardiac arrest [Fatal]
  - Syncope [Unknown]
  - Mouth haemorrhage [Unknown]
  - Anaemia [Unknown]
